FAERS Safety Report 17736298 (Version 1)
Quarter: 2020Q2

REPORT INFORMATION
  Report Type: Spontaneous
  Country: US (occurrence: US)
  Receive Date: 20200501
  Receipt Date: 20200501
  Transmission Date: 20200714
  Serious: No
  Sender: FDA-Public Use
  Company Number: US-RADIUS HEALTH INC.-2020US000942

PATIENT
  Age: 64 Year
  Sex: Female

DRUGS (1)
  1. TYMLOS [Suspect]
     Active Substance: ABALOPARATIDE
     Indication: OSTEOPOROSIS POSTMENOPAUSAL
     Dosage: 80 MCG, QD
     Route: 058
     Dates: start: 20200228, end: 202003

REACTIONS (8)
  - Hypersensitivity [Unknown]
  - Upper respiratory tract congestion [Unknown]
  - Abdominal pain upper [Unknown]
  - Product dose omission [Unknown]
  - Heart rate increased [Unknown]
  - Productive cough [Unknown]
  - Gastric dilatation [Unknown]
  - Dizziness [Unknown]

NARRATIVE: CASE EVENT DATE: 20200301
